FAERS Safety Report 5043016-7 (Version None)
Quarter: 2006Q2

REPORT INFORMATION
  Report Type: 
  Country: None (occurrence: None)
  Receive Date: 20060627
  Receipt Date: 20060613
  Transmission Date: 20061013
  Serious: Yes (Hospitalization, Other)
  Sender: FDA-Public Use
  Company Number: 2006054808

PATIENT
  Age: 75 Year
  Sex: Male

DRUGS (5)
  1. VFEND [Suspect]
     Indication: BRONCHOPULMONARY ASPERGILLOSIS
     Dosage: 400 MG, ORAL
     Route: 048
     Dates: start: 20060315, end: 20060404
  2. MUCOSOLVAN (AMBROXOL HYDROCHLORIDE) [Suspect]
     Indication: COUGH
     Dosage: 45 MG (15 MG, 3 IN 1 D), ORAL
     Route: 048
     Dates: start: 20060226
  3. ISOSORBIDE MONONITRATE [Suspect]
     Indication: ANGINA PECTORIS
     Dosage: 40 MG (20 MG, 2 IN 1 D), ORAL
     Route: 048
     Dates: start: 20060226
  4. ISOSORBIDE DINITRATE [Suspect]
     Indication: ANGINA PECTORIS
     Dosage: 40 MG (40 MG, 1 IN 1 D)
     Dates: start: 20060226
  5. RIZE (CLOTIAZEPAM) [Suspect]
     Indication: ANXIETY DISORDER
     Dosage: 5 MG (5 MG, 1 IN 1 D), ORAL
     Route: 048
     Dates: start: 20060226

REACTIONS (5)
  - DRUG LEVEL INCREASED [None]
  - HYPERSTHENURIA [None]
  - INAPPROPRIATE ANTIDIURETIC HORMONE SECRETION [None]
  - LIVER DISORDER [None]
  - LOSS OF CONSCIOUSNESS [None]
